APPROVED DRUG PRODUCT: HEPARIN SODIUM IN PLASTIC CONTAINER
Active Ingredient: HEPARIN SODIUM
Strength: 5,000 UNITS/ML
Dosage Form/Route: INJECTABLE;INJECTION
Application: N017029 | Product #014 | TE Code: AP
Applicant: FRESENIUS KABI USA LLC
Approved: Dec 5, 1985 | RLD: Yes | RS: Yes | Type: RX